FAERS Safety Report 17826088 (Version 1)
Quarter: 2020Q2

REPORT INFORMATION
  Report Type: Spontaneous
  Country: FR (occurrence: FR)
  Receive Date: 20200526
  Receipt Date: 20200526
  Transmission Date: 20200714
  Serious: Yes (Other)
  Sender: FDA-Public Use
  Company Number: FR-BAYER-2020-091534

PATIENT
  Age: 63 Year
  Sex: Male

DRUGS (1)
  1. ULTRAVIST [Suspect]
     Active Substance: IOPROMIDE
     Dosage: UNK, ONCE
     Dates: start: 202005, end: 202005

REACTIONS (11)
  - Shock [None]
  - Renal impairment [None]
  - Inflammation [None]
  - Abdominal pain [None]
  - Thrombocytopenia [None]
  - Hypotension [None]
  - Tachycardia [None]
  - Haemolytic anaemia [None]
  - Chromaturia [None]
  - Rash [None]
  - Hepatic enzyme abnormal [None]

NARRATIVE: CASE EVENT DATE: 202005
